FAERS Safety Report 11171106 (Version 1)
Quarter: 2015Q2

REPORT INFORMATION
  Report Type: Spontaneous
  Country: US (occurrence: None)
  Receive Date: 20150515
  Receipt Date: 20150515
  Transmission Date: 20150821
  Serious: Yes (Other)
  Sender: FDA-Public Use
  Company Number: 2014011390

PATIENT
  Age: 38 Year
  Sex: Female

DRUGS (1)
  1. CIMZIA [Suspect]
     Active Substance: CERTOLIZUMAB PEGOL
     Indication: CROHN^S DISEASE
     Dates: start: 20131118, end: 20141024

REACTIONS (8)
  - Gastrointestinal ulcer [None]
  - Off label use [None]
  - Abdominal pain [None]
  - Nausea [None]
  - Crohn^s disease [None]
  - Drug ineffective [None]
  - Weight decreased [None]
  - Vomiting [None]

NARRATIVE: CASE EVENT DATE: 20131118
